FAERS Safety Report 8045030-6 (Version None)
Quarter: 2012Q1

REPORT INFORMATION
  Report Type: 
  Country: None (occurrence: None)
  Receive Date: 20120111
  Receipt Date: 20120111
  Transmission Date: 20120608
  Serious: No
  Sender: FDA-Public Use
  Company Number: None

PATIENT
  Age: 25 Year
  Sex: Female
  Weight: 90.7194 kg

DRUGS (1)
  1. PALIPERIDONE [Suspect]
     Indication: DEPRESSION
     Dosage: 274 MG 1 MO

REACTIONS (2)
  - SWELLING [None]
  - HEART RATE INCREASED [None]
